FAERS Safety Report 17278017 (Version 2)
Quarter: 2020Q1

REPORT INFORMATION
  Report Type: Spontaneous
  Country: PL (occurrence: PL)
  Receive Date: 20200116
  Receipt Date: 20200122
  Transmission Date: 20200409
  Serious: Yes (Other)
  Sender: FDA-Public Use
  Company Number: PL-MYLANLABS-2020M1004316

PATIENT
  Age: 49 Year
  Sex: Male

DRUGS (16)
  1. FENTANYL. [Suspect]
     Active Substance: FENTANYL
     Indication: BREAKTHROUGH PAIN
     Dosage: 10 PACKS OF THE DRUG BETWEEN APPOINTMENTS
     Route: 045
     Dates: start: 2015
  2. FENTANYL. [Suspect]
     Active Substance: FENTANYL
     Indication: BREAKTHROUGH PAIN
     Dosage: UNK (SUBLINGUAL TABLET)
     Route: 065
     Dates: start: 2015
  3. FENTANYL. [Suspect]
     Active Substance: FENTANYL
     Indication: BREAKTHROUGH PAIN
     Dosage: 200 MICROGRAM, QW (100 UG, 1 PATCH, Q72H)
     Route: 062
     Dates: start: 2018
  4. FENTANYL. [Suspect]
     Active Substance: FENTANYL
     Dosage: UNK (TWICE THE PRESCRIBED AMOUNT, NASAL DROP (NASAL SPRAY TOO))
     Route: 045
     Dates: start: 2017
  5. FENTANYL. [Suspect]
     Active Substance: FENTANYL
     Dosage: 400 UG, QID INTO EACH NOSTRIL
     Route: 045
     Dates: start: 2015
  6. PREGABALIN. [Suspect]
     Active Substance: PREGABALIN
     Dosage: 150 MILLIGRAM, BID
     Route: 065
     Dates: start: 2018
  7. MORPHINI SULFAS [Suspect]
     Active Substance: MORPHINE SULFATE
     Indication: BREAKTHROUGH PAIN
     Dosage: 20 MILLIGRAM, PRN
     Route: 065
     Dates: start: 2015
  8. METHADONE [Suspect]
     Active Substance: METHADONE HYDROCHLORIDE
     Indication: BREAKTHROUGH PAIN
     Dosage: UNK
     Route: 065
  9. FENTANYL. [Suspect]
     Active Substance: FENTANYL
     Dosage: 100 MICROGRAM, Q8H (NASAL DROP (NASAL SPRAY TOO))
     Route: 045
     Dates: start: 2015
  10. FENTANYL. [Suspect]
     Active Substance: FENTANYL
     Dosage: 1600 MICROGRAM, QD (400 UG, QID INTO EACH NOSTRIL)
     Route: 045
     Dates: start: 2018
  11. KETOPROFEN. [Suspect]
     Active Substance: KETOPROFEN
     Indication: BREAKTHROUGH PAIN
     Dosage: 100 MILLIGRAM, PRN
     Route: 065
     Dates: start: 2015
  12. SEVREDOL [Suspect]
     Active Substance: MORPHINE
     Indication: BREAKTHROUGH PAIN
     Dosage: 20 MILLIGRAM, PRN
     Route: 065
     Dates: start: 2018
  13. FENTANYL. [Suspect]
     Active Substance: FENTANYL
     Dosage: 400 MICROGRAM, QD (INTO EACH NOSTRIL, NASAL DROP (NASAL SPRAY TOO))
     Route: 045
     Dates: start: 2015
  14. PREGABALIN. [Suspect]
     Active Substance: PREGABALIN
     Indication: BREAKTHROUGH PAIN
     Dosage: 120 MILLIGRAM, BID
     Route: 065
     Dates: start: 2015
  15. OXYCODONE [Suspect]
     Active Substance: OXYCODONE
     Indication: BREAKTHROUGH PAIN
     Dosage: 80 MILLIGRAM, Q8H
     Route: 065
     Dates: start: 2015
  16. OXYCODONE [Suspect]
     Active Substance: OXYCODONE
     Dosage: 80 MILLIGRAM, Q8H
     Route: 065
     Dates: start: 2018

REACTIONS (3)
  - Drug withdrawal syndrome [Unknown]
  - Drug dependence [Not Recovered/Not Resolved]
  - Prescription form tampering [Unknown]

NARRATIVE: CASE EVENT DATE: 2015
